FAERS Safety Report 7780044-2 (Version None)
Quarter: 2011Q3

REPORT INFORMATION
  Report Type: 
  Country: None (occurrence: None)
  Receive Date: 20110927
  Receipt Date: 20110920
  Transmission Date: 20111222
  Serious: Yes (Hospitalization)
  Sender: FDA-Public Use
  Company Number: US-BRISTOL-MYERS SQUIBB COMPANY-16051971

PATIENT
  Age: 60 Year
  Sex: Male
  Weight: 79 kg

DRUGS (19)
  1. VITAMIN B-12 [Concomitant]
     Dosage: ONG
     Dates: start: 20110412
  2. COLACE [Concomitant]
     Dosage: ONG
     Dates: start: 20110527
  3. STELAZINE [Concomitant]
     Dosage: ONG
  4. METHOCARBAMOL [Concomitant]
     Dates: start: 20110215
  5. FLUTICASONE PROPIONATE [Concomitant]
     Dates: start: 20110215
  6. LEVOTHYROXINE SODIUM [Concomitant]
     Dates: start: 20110215
  7. CETUXIMAB [Suspect]
     Indication: HEAD AND NECK CANCER
     Dosage: 250MG/M2/WEEKLY/IV. INTERRUPTED ON 17MAY11 AND RESTARTED ON 24MAY11
     Route: 042
     Dates: start: 20110419
  8. CARBOPLATIN [Suspect]
     Indication: HEAD AND NECK CANCER
     Dosage: 1 DF = 5AUC
     Route: 042
     Dates: start: 20110419
  9. NEXIUM [Concomitant]
     Dosage: ONG
     Dates: start: 20110215
  10. LACTOBACILLUS [Concomitant]
     Dosage: ONG
     Dates: start: 20110215
  11. ZOFRAN [Concomitant]
     Dosage: ONG
     Dates: start: 20110419
  12. DECADRON [Concomitant]
     Dosage: ONG
     Dates: start: 20110215
  13. DILTIAZEM HCL [Concomitant]
     Dosage: ONG
     Dates: start: 20110215
  14. PEMETREXED DISODIUM [Suspect]
     Indication: HEAD AND NECK CANCER
     Route: 042
     Dates: start: 20110419
  15. FISH OIL [Concomitant]
     Dosage: ONG
     Dates: start: 20110215
  16. FOLIC ACID [Concomitant]
     Dosage: ONG
  17. MORPHINE [Concomitant]
     Dosage: ONG
     Dates: start: 20110215
  18. COMPAZINE [Concomitant]
     Dosage: ONG
     Dates: start: 20110419
  19. COUMADIN [Concomitant]
     Dates: start: 20110215

REACTIONS (1)
  - DIVERTICULITIS [None]
